FAERS Safety Report 16647280 (Version 1)
Quarter: 2019Q3

REPORT INFORMATION
  Report Type: Spontaneous
  Country: US (occurrence: US)
  Receive Date: 20190729
  Receipt Date: 20190729
  Transmission Date: 20191004
  Serious: No
  Sender: FDA-Public Use
  Company Number: None

PATIENT
  Age: 71 Year
  Sex: Female
  Weight: 55.8 kg

DRUGS (2)
  1. WHEY PROTEIN SHAKE [Concomitant]
  2. KERANIQUE FOR WOMEN HAIR REGROWTH TREATMENT [Suspect]
     Active Substance: MINOXIDIL
     Indication: HAIR GROWTH RATE ABNORMAL
     Dosage: ?          OTHER ROUTE:WASH HAI?
     Route: 061
     Dates: start: 20190513, end: 20190717

REACTIONS (2)
  - Trichorrhexis [None]
  - Alopecia [None]

NARRATIVE: CASE EVENT DATE: 20190513
